FAERS Safety Report 21306115 (Version 2)
Quarter: 2022Q3

REPORT INFORMATION
  Report Type: Spontaneous
  Country: FR (occurrence: FR)
  Receive Date: 20220908
  Receipt Date: 20220922
  Transmission Date: 20221026
  Serious: Yes (Hospitalization)
  Sender: FDA-Public Use
  Company Number: None

PATIENT
  Age: 22 Year
  Sex: Female
  Weight: 48 kg

DRUGS (3)
  1. TRAMADOL HYDROCHLORIDE [Suspect]
     Active Substance: TRAMADOL HYDROCHLORIDE
     Indication: Product used for unknown indication
     Dosage: 4-5 TABLETS/DAY , THERAPY END DATE : NASK
     Route: 065
     Dates: start: 2019
  2. DIAZEPAM [Suspect]
     Active Substance: DIAZEPAM
     Indication: Product used for unknown indication
     Dosage: 10 MILLIGRAM DAILY; 4-5 TABLETS OF 10 MG PER DAY, THERAPY END DATE : NASK
     Route: 065
     Dates: start: 202102
  3. ZOLPIDEM [Suspect]
     Active Substance: ZOLPIDEM TARTRATE
     Indication: Product used for unknown indication
     Dosage: 4 DOSAGE FORMS DAILY; 4 TABLETS PER DAY , THERAPY START DATE  : NASK, THERAPY END DATE : NASK
     Route: 065

REACTIONS (1)
  - Drug detoxification [Not Recovered/Not Resolved]

NARRATIVE: CASE EVENT DATE: 20210719
